FAERS Safety Report 26100114 (Version 1)
Quarter: 2025Q4

REPORT INFORMATION
  Report Type: Spontaneous
  Country: US (occurrence: US)
  Receive Date: 20251128
  Receipt Date: 20251128
  Transmission Date: 20260118
  Serious: No
  Sender: ZYDUS PHARM
  Company Number: US-CADILA HEALTHCARE LIMITED-US-ZYDUS-131071

PATIENT

DRUGS (1)
  1. CARVEDILOL [Suspect]
     Active Substance: CARVEDILOL
     Indication: Atrial fibrillation
     Dosage: 12.5 MILLIGRAM, BID
     Route: 065
     Dates: start: 20251017

REACTIONS (6)
  - Myalgia [Unknown]
  - Arthralgia [Unknown]
  - Muscle strain [Unknown]
  - Muscle spasms [Unknown]
  - Groin pain [Unknown]
  - Restless legs syndrome [Unknown]

NARRATIVE: CASE EVENT DATE: 20251001
